FAERS Safety Report 7011854-7 (Version None)
Quarter: 2010Q3

REPORT INFORMATION
  Report Type: 
  Country: None (occurrence: None)
  Receive Date: 20100924
  Receipt Date: 20100914
  Transmission Date: 20110219
  Serious: Yes (Other)
  Sender: FDA-Public Use
  Company Number: US-ASTRAZENECA-2010SE43081

PATIENT
  Age: 75 Year
  Sex: Male

DRUGS (1)
  1. SYMBICORT [Suspect]
     Indication: EMPHYSEMA
     Dosage: 160/4.5 2 PUFFS
     Route: 055
     Dates: start: 20100104, end: 20100204

REACTIONS (2)
  - CARDIAC FIBRILLATION [None]
  - RETINAL INFARCTION [None]
